FAERS Safety Report 18569731 (Version 2)
Quarter: 2020Q4

REPORT INFORMATION
  Report Type: Spontaneous
  Country: NL (occurrence: NL)
  Receive Date: 20201202
  Receipt Date: 20201210
  Transmission Date: 20210114
  Serious: Yes (Other)
  Sender: FDA-Public Use
  Company Number: NL-BIODELIVERY SCIENCES INTERNATIONAL-2020BDSI0717

PATIENT
  Sex: Male

DRUGS (26)
  1. MORPHINE [Suspect]
     Active Substance: MORPHINE
     Indication: ARTHRALGIA
     Route: 065
  2. OXYCODONE HYDROCHLORIDE. [Suspect]
     Active Substance: OXYCODONE HYDROCHLORIDE
     Indication: INTERVERTEBRAL DISC DEGENERATION
     Route: 065
  3. OXYCODONE HYDROCHLORIDE. [Suspect]
     Active Substance: OXYCODONE HYDROCHLORIDE
     Indication: INTERVERTEBRAL DISC DEGENERATION
  4. MORPHINE [Suspect]
     Active Substance: MORPHINE
     Indication: INTERVERTEBRAL DISC DEGENERATION
  5. PARACETAMOL/HYDROCODONE BITARTRATE [Suspect]
     Active Substance: ACETAMINOPHEN\HYDROCODONE BITARTRATE
     Indication: INTERVERTEBRAL DISC DEGENERATION
  6. MORPHINE SULFATE. [Suspect]
     Active Substance: MORPHINE SULFATE
     Indication: ARTHRALGIA
  7. TRAMADOL. [Suspect]
     Active Substance: TRAMADOL
     Indication: INTERVERTEBRAL DISC DEGENERATION
     Route: 065
  8. OXYCODONE/PARACETAMOL [Suspect]
     Active Substance: ACETAMINOPHEN\OXYCODONE HYDROCHLORIDE
     Indication: ARTHRALGIA
     Route: 065
  9. OXYCODONE/PARACETAMOL [Suspect]
     Active Substance: ACETAMINOPHEN\OXYCODONE HYDROCHLORIDE
     Indication: INTERVERTEBRAL DISC DEGENERATION
  10. OXYCODONE HYDROCHLORIDE. [Suspect]
     Active Substance: OXYCODONE HYDROCHLORIDE
     Indication: ARTHRALGIA
     Route: 065
  11. CODEINE PHOSPHATE/PARACETAMOL [Suspect]
     Active Substance: ACETAMINOPHEN\CODEINE PHOSPHATE
     Indication: ARTHRALGIA
     Route: 065
  12. OXYCODONE HYDROCHLORIDE. [Suspect]
     Active Substance: OXYCODONE HYDROCHLORIDE
     Indication: INTERVERTEBRAL DISC DEGENERATION
  13. PARACETAMOL/HYDROCODONE BITARTRATE [Suspect]
     Active Substance: ACETAMINOPHEN\HYDROCODONE BITARTRATE
     Indication: ARTHRALGIA
     Route: 065
  14. LORATADINE. [Suspect]
     Active Substance: LORATADINE
     Indication: ARTHRALGIA
     Route: 065
  15. PARACETAMOL/ORPHENADRINE CITRATE [Suspect]
     Active Substance: ACETAMINOPHEN\ORPHENADRINE CITRATE
     Indication: ARTHRALGIA
     Route: 065
  16. FENTANYL CITRATE. [Suspect]
     Active Substance: FENTANYL CITRATE
     Indication: ARTHRALGIA
     Route: 065
  17. FENTANYL CITRATE. [Suspect]
     Active Substance: FENTANYL CITRATE
     Indication: INTERVERTEBRAL DISC DEGENERATION
  18. CODEINE PHOSPHATE/PARACETAMOL [Suspect]
     Active Substance: ACETAMINOPHEN\CODEINE PHOSPHATE
     Indication: INTERVERTEBRAL DISC DEGENERATION
  19. LORATADINE. [Suspect]
     Active Substance: LORATADINE
     Indication: INTERVERTEBRAL DISC DEGENERATION
  20. OXYCODONE HYDROCHLORIDE. [Suspect]
     Active Substance: OXYCODONE HYDROCHLORIDE
     Indication: ARTHRALGIA
     Route: 065
  21. TRAMADOL. [Suspect]
     Active Substance: TRAMADOL
     Indication: ARTHRALGIA
  22. PARACETAMOL/OXYCODONE HYDROCHLORIDE [Suspect]
     Active Substance: ACETAMINOPHEN\OXYCODONE HYDROCHLORIDE
     Indication: ARTHRALGIA
     Route: 065
  23. OXYCODONE HYDROCHLORIDE. [Suspect]
     Active Substance: OXYCODONE HYDROCHLORIDE
     Indication: ARTHRALGIA
     Dosage: DAILY
     Route: 065
  24. PARACETAMOL/OXYCODONE HYDROCHLORIDE [Suspect]
     Active Substance: ACETAMINOPHEN\OXYCODONE HYDROCHLORIDE
     Indication: INTERVERTEBRAL DISC DEGENERATION
  25. PARACETAMOL/ORPHENADRINE CITRATE [Suspect]
     Active Substance: ACETAMINOPHEN\ORPHENADRINE CITRATE
     Indication: INTERVERTEBRAL DISC DEGENERATION
  26. MORPHINE SULFATE. [Suspect]
     Active Substance: MORPHINE SULFATE
     Indication: INTERVERTEBRAL DISC DEGENERATION
     Route: 065

REACTIONS (7)
  - Road traffic accident [Unknown]
  - Dependence [Unknown]
  - Glaucoma [Unknown]
  - Blindness [Unknown]
  - Quality of life decreased [Unknown]
  - Liver injury [Unknown]
  - Overdose [Unknown]
